FAERS Safety Report 6694299-9 (Version None)
Quarter: 2010Q2

REPORT INFORMATION
  Report Type: 
  Country: None (occurrence: None)
  Receive Date: 20100421
  Receipt Date: 20100406
  Transmission Date: 20101027
  Serious: Yes (Other)
  Sender: FDA-Public Use
  Company Number: 20100161

PATIENT
  Age: 69 Year
  Sex: Female

DRUGS (2)
  1. NITROGLYCERIN [Suspect]
     Indication: CHEST PAIN
     Dosage: 10 UG/MIN; INTRAVENOUS
     Route: 042
  2. NITROGLYCERIN [Concomitant]

REACTIONS (5)
  - ANAPHYLACTIC REACTION [None]
  - ANGIOEDEMA [None]
  - DYSPHONIA [None]
  - INFUSION RELATED REACTION [None]
  - SKIN TEST POSITIVE [None]
